FAERS Safety Report 19969446 (Version 4)
Quarter: 2021Q4

REPORT INFORMATION
  Report Type: Spontaneous
  Country: JP (occurrence: JP)
  Receive Date: 20211019
  Receipt Date: 20211101
  Transmission Date: 20220304
  Serious: No
  Sender: FDA-Public Use
  Company Number: JP-BAYER-2021A231792

PATIENT
  Age: 70 Year
  Sex: Male

DRUGS (2)
  1. STIVARGA [Suspect]
     Active Substance: REGORAFENIB
     Indication: Colorectal cancer
     Dosage: 160MG
     Route: 048
     Dates: start: 20180509
  2. STIVARGA [Suspect]
     Active Substance: REGORAFENIB
     Indication: Colon cancer

REACTIONS (2)
  - Dyspnoea [None]
  - Decreased appetite [None]

NARRATIVE: CASE EVENT DATE: 20180522
